FAERS Safety Report 8937395 (Version 2)
Quarter: 2012Q4

REPORT INFORMATION
  Report Type: 
  Country: US (occurrence: US)
  Receive Date: 20121126
  Receipt Date: 20121212
  Transmission Date: 20130627
  Serious: Yes (Death, Other)
  Sender: FDA-Public Use
  Company Number: US-ASTELLAS-1108221

PATIENT
  Sex: Male

DRUGS (1)
  1. TARCEVA [Suspect]
     Indication: HEPATIC NEOPLASM MALIGNANT
     Route: 048
     Dates: start: 20081210, end: 20090224

REACTIONS (6)
  - Hepatocellular carcinoma [Fatal]
  - Depression [Unknown]
  - Malnutrition [Unknown]
  - Diarrhoea [Unknown]
  - Liver disorder [Unknown]
  - Chronic hepatitis [Unknown]
